FAERS Safety Report 9935438 (Version 2)
Quarter: 2014Q1

REPORT INFORMATION
  Report Type: Spontaneous
  Country: US (occurrence: US)
  Receive Date: 20140228
  Receipt Date: 20140324
  Transmission Date: 20141002
  Serious: No
  Sender: FDA-Public Use
  Company Number: US-PFIZER INC-2014056641

PATIENT
  Age: 69 Year
  Sex: Male

DRUGS (11)
  1. SUTENT [Suspect]
     Indication: RENAL CANCER
     Dosage: 25 MG, 1X/DAY
     Route: 048
     Dates: start: 20121114
  2. SUTENT [Suspect]
     Dosage: 12.5 MG, 1X/DAY
     Route: 048
     Dates: start: 20121114
  3. SERTRALINE [Concomitant]
  4. PRAMIPEXOLE [Concomitant]
     Dosage: UNK
  5. GLIPIZIDE [Concomitant]
  6. METOPROLOL [Concomitant]
  7. ALFUZOSIN [Concomitant]
  8. VITAMIN B [Concomitant]
     Dosage: UNK
  9. CALCIUM [Concomitant]
  10. VITAMIN D [Concomitant]
  11. OMEGA 3 [Concomitant]

REACTIONS (1)
  - Fatigue [Not Recovered/Not Resolved]
